FAERS Safety Report 10753493 (Version 1)
Quarter: 2015Q1

REPORT INFORMATION
  Report Type: Spontaneous
  Country: US (occurrence: US)
  Receive Date: 20150131
  Receipt Date: 20150131
  Transmission Date: 20150721
  Serious: Yes (Other)
  Sender: FDA-Public Use
  Company Number: PHHY2015US011959

PATIENT
  Age: 47 Year
  Sex: Female

DRUGS (6)
  1. PARCOPA [Suspect]
     Active Substance: CARBIDOPA\LEVODOPA
     Indication: PARKINSON^S DISEASE
     Dosage: 3 OT, Q6H
     Route: 065
  2. PARCOPA [Suspect]
     Active Substance: CARBIDOPA\LEVODOPA
     Dosage: 2.5 OT, Q3H
     Route: 065
  3. LEVODOPA+CARBIDOPA [Suspect]
     Active Substance: CARBIDOPA\LEVODOPA
     Indication: PARKINSON^S DISEASE
     Dosage: 1 OT, QHS
     Route: 065
  4. ROPINIROLE. [Concomitant]
     Active Substance: ROPINIROLE
     Indication: PARKINSON^S DISEASE
     Dosage: 4 MG, Q6H
     Route: 065
  5. ROPINIROLE. [Concomitant]
     Active Substance: ROPINIROLE
     Dosage: 1 MG, BID
     Route: 065
  6. BENZTROPINE [Concomitant]
     Active Substance: BENZTROPINE
     Indication: PARKINSON^S DISEASE
     Dosage: 1 MG, BID
     Route: 065

REACTIONS (7)
  - Anhedonia [Unknown]
  - Obsessive thoughts [Unknown]
  - Energy increased [Unknown]
  - Drug dependence [Recovered/Resolved]
  - Compulsions [Recovering/Resolving]
  - Depression [Unknown]
  - Dopamine dysregulation syndrome [Unknown]
